FAERS Safety Report 9448480 (Version 1)
Quarter: 2013Q3

REPORT INFORMATION
  Report Type: Spontaneous
  Country: IT (occurrence: None)
  Receive Date: 20130806
  Receipt Date: 20130806
  Transmission Date: 20140515
  Serious: Yes (Hospitalization)
  Sender: FDA-Public Use
  Company Number: 1828407

PATIENT
  Sex: Male

DRUGS (1)
  1. IRINOTECAN HYDROCHLORIDE [Suspect]
     Indication: PRODUCT USED FOR UNKNOWN INDICATION

REACTIONS (2)
  - Blood pressure inadequately controlled [None]
  - Subileus [None]
